FAERS Safety Report 7130477-2 (Version None)
Quarter: 2010Q4

REPORT INFORMATION
  Report Type: 
  Country: None (occurrence: None)
  Receive Date: 20101201
  Receipt Date: 20101118
  Transmission Date: 20110411
  Serious: Yes (Other)
  Sender: FDA-Public Use
  Company Number: PHHY2010BR78068

PATIENT
  Sex: Male

DRUGS (2)
  1. DIOVAN [Suspect]
     Dosage: 160 MG
  2. DIOVAN [Suspect]
     Dosage: 320 MG

REACTIONS (2)
  - DRUG INEFFECTIVE [None]
  - HYPERTENSION [None]
